FAERS Safety Report 18502344 (Version 1)
Quarter: 2020Q4

REPORT INFORMATION
  Report Type: Other
  Country: US (occurrence: US)
  Receive Date: 20201113
  Receipt Date: 20201113
  Transmission Date: 20210114
  Serious: No
  Sender: FDA-Public Use
  Company Number: US-LEADIANT BIOSCIENCES INC-2020STPI000249

PATIENT
  Sex: Female

DRUGS (10)
  1. FLUTICASONE. [Concomitant]
     Active Substance: FLUTICASONE
  2. DORZOLAMIDE [Concomitant]
     Active Substance: DORZOLAMIDE
  3. FAMOTIDINE. [Concomitant]
     Active Substance: FAMOTIDINE
  4. PANTOPRAZOLE [Concomitant]
     Active Substance: PANTOPRAZOLE
  5. POLYETHYLENE GLYCOL;PROPYLENE GLYCOL [Concomitant]
  6. AMLODIPINE [Concomitant]
     Active Substance: AMLODIPINE BESYLATE
  7. GABAPENTIN. [Concomitant]
     Active Substance: GABAPENTIN
  8. LEVOTHYROXIN [Concomitant]
     Active Substance: LEVOTHYROXINE
  9. CYSTARAN [Suspect]
     Active Substance: CYSTEAMINE HYDROCHLORIDE
     Indication: CYSTINOSIS
     Dosage: 1 DROP INTO EACH EYE EVERY HOUR WHILE AWAKE AS NEEDED
     Route: 047
     Dates: start: 20200508
  10. TRAMADOL. [Concomitant]
     Active Substance: TRAMADOL

REACTIONS (1)
  - Eye irritation [Unknown]
